FAERS Safety Report 10154845 (Version 1)
Quarter: 2014Q2

REPORT INFORMATION
  Report Type: Spontaneous
  Country: US (occurrence: US)
  Receive Date: 20140506
  Receipt Date: 20140506
  Transmission Date: 20141212
  Serious: No
  Sender: FDA-Public Use
  Company Number: US-PFIZER INC-2014123388

PATIENT
  Age: 39 Year
  Sex: Female
  Weight: 64.85 kg

DRUGS (2)
  1. EFFEXOR XR [Suspect]
     Indication: PANIC ATTACK
     Dosage: 75 MG, 1X/DAY
     Route: 048
     Dates: start: 2002
  2. EFFEXOR XR [Suspect]
     Indication: ANXIETY

REACTIONS (1)
  - Blood cholesterol increased [Unknown]
